FAERS Safety Report 6149000-4 (Version None)
Quarter: 2009Q2

REPORT INFORMATION
  Report Type: 
  Country: None (occurrence: None)
  Receive Date: 20090407
  Receipt Date: 20090324
  Transmission Date: 20091009
  Serious: Yes (Hospitalization, Other)
  Sender: FDA-Public Use
  Company Number: 232689K08USA

PATIENT
  Age: 29 Year
  Sex: Female

DRUGS (1)
  1. REBIF [Suspect]
     Indication: MULTIPLE SCLEROSIS
     Dosage: 44 MCG, 3 IN 1 WEEKS, SUBCUTANEOUS
     Route: 058
     Dates: start: 20080623, end: 20081001

REACTIONS (11)
  - ADRENAL INSUFFICIENCY [None]
  - CARDIAC FAILURE CONGESTIVE [None]
  - GASTROINTESTINAL DISORDER [None]
  - HAEMORRHAGE [None]
  - HYSTERECTOMY [None]
  - IMPAIRED GASTRIC EMPTYING [None]
  - LYMPHADENOPATHY [None]
  - MULTIPLE SCLEROSIS RELAPSE [None]
  - NEOPLASM MALIGNANT [None]
  - PELVIC PAIN [None]
  - POST PROCEDURAL COMPLICATION [None]
